FAERS Safety Report 7385935-2 (Version None)
Quarter: 2011Q1

REPORT INFORMATION
  Report Type: 
  Country: None (occurrence: None)
  Receive Date: 20110331
  Receipt Date: 20110323
  Transmission Date: 20110831
  Serious: Yes (Hospitalization)
  Sender: FDA-Public Use
  Company Number: US-US-EMD SERONO, INC.-7049905

PATIENT
  Sex: Female
  Weight: 60 kg

DRUGS (5)
  1. UNSPECIFIED MEDICATION [Concomitant]
     Indication: PALPITATIONS
  2. ROPENEROL [Concomitant]
     Indication: MUSCLE SPASMS
  3. AMITRIPTYLINE [Concomitant]
     Indication: SLEEP DISORDER
  4. REBIF [Suspect]
     Indication: PRODUCT USED FOR UNKNOWN INDICATION
     Route: 058
     Dates: start: 20100923
  5. AMITRIPTYLINE [Concomitant]
     Indication: RESTLESSNESS

REACTIONS (5)
  - NOCTURIA [None]
  - CHEST PAIN [None]
  - INJECTION SITE PAIN [None]
  - URINARY INCONTINENCE [None]
  - INJECTION SITE HAEMATOMA [None]
